FAERS Safety Report 9477210 (Version 2)
Quarter: 2013Q3

REPORT INFORMATION
  Report Type: Spontaneous
  Country: US (occurrence: US)
  Receive Date: 20130826
  Receipt Date: 20130826
  Transmission Date: 20140515
  Serious: Yes (Hospitalization)
  Sender: FDA-Public Use
  Company Number: US-ELI_LILLY_AND_COMPANY-US201305002069

PATIENT
  Sex: Female

DRUGS (6)
  1. HUMALOG 25% LISPRO, 75% NPL [Suspect]
     Indication: TYPE 2 DIABETES MELLITUS
     Dosage: 8 U, EACH MORNING
     Dates: start: 201301
  2. HUMALOG 25% LISPRO, 75% NPL [Suspect]
     Dosage: 9 U, EACH EVENING
     Dates: start: 20130426
  3. HUMALOG 25% LISPRO, 75% NPL [Suspect]
     Dosage: 7 U, EACH MORNING
     Dates: start: 20130426
  4. NOVOLOG [Concomitant]
  5. LISINOPRIL [Concomitant]
     Indication: HYPERTENSION
     Dosage: UNK
  6. BABY ASPIRIN [Concomitant]
     Indication: CARDIAC DISORDER
     Dosage: UNK

REACTIONS (9)
  - Vertigo [Not Recovered/Not Resolved]
  - Blood glucose increased [Unknown]
  - Contusion [Not Recovered/Not Resolved]
  - Underdose [Recovered/Resolved]
  - Injection site pain [Unknown]
  - Confusional state [Unknown]
  - Vomiting [Unknown]
  - Injection site haemorrhage [Unknown]
  - Speech disorder [Unknown]
